FAERS Safety Report 26043752 (Version 1)
Quarter: 2025Q4

REPORT INFORMATION
  Report Type: Spontaneous
  Country: CN (occurrence: CN)
  Receive Date: 20251113
  Receipt Date: 20251113
  Transmission Date: 20260117
  Serious: Yes (Hospitalization, Other)
  Sender: BAXTER
  Company Number: CN-BAXTER-2025BAX023939

PATIENT
  Age: 48 Year
  Sex: Female

DRUGS (10)
  1. CYCLOPHOSPHAMIDE [Suspect]
     Active Substance: CYCLOPHOSPHAMIDE
     Indication: Acute leukaemia
     Dosage: DAY 3 0.4 G/DAY
     Route: 042
  2. SULBACTAM [Suspect]
     Active Substance: SULBACTAM
     Indication: Pyrexia
     Dosage: DAY 1 9 G/DAY
     Route: 042
  3. HYDROXYUREA [Suspect]
     Active Substance: HYDROXYUREA
     Indication: Pyrexia
     Dosage: 3 G/DAY P.O.
     Route: 065
  4. DEXAMETHASONE [Suspect]
     Active Substance: DEXAMETHASONE
     Indication: Acute leukaemia
     Dosage: DAY 3 10 MG/DAY I
     Route: 065
  5. VORICONAZOLE [Suspect]
     Active Substance: VORICONAZOLE
     Indication: Acute leukaemia
     Dosage: DAY 3 4 MG/KG, Q12H
     Route: 042
  6. VORICONAZOLE [Suspect]
     Active Substance: VORICONAZOLE
     Dosage: DAY 9 4 MG/KG
     Route: 042
  7. VINCRISTINE [Suspect]
     Active Substance: VINCRISTINE
     Indication: Acute leukaemia
     Dosage: DAY 6, 2 MG/QWX4
     Route: 065
  8. DAUNORUBICIN [Suspect]
     Active Substance: DAUNORUBICIN
     Indication: Acute leukaemia
     Dosage: DAY 6, 30 MG/M2 DAY 1-3
     Route: 065
  9. PREDNISONE [Suspect]
     Active Substance: PREDNISONE
     Indication: Acute leukaemia
     Dosage: DAY 6, 60 MG/M2 DAY 1-28
     Route: 065
  10. IMATINIB [Suspect]
     Active Substance: IMATINIB
     Indication: Acute leukaemia
     Dosage: DAY 6, 400 MG/DAY
     Route: 065

REACTIONS (6)
  - Rhinocerebral mucormycosis [Recovered/Resolved]
  - Body temperature increased [Recovered/Resolved]
  - Skin lesion [Recovered/Resolved]
  - C-reactive protein increased [Recovered/Resolved]
  - Procalcitonin increased [Recovered/Resolved]
  - Pyrexia [Recovered/Resolved]
